FAERS Safety Report 6535352-X (Version None)
Quarter: 2010Q1

REPORT INFORMATION
  Report Type: 
  Country: None (occurrence: None)
  Receive Date: 20100113
  Receipt Date: 20091213
  Transmission Date: 20100710
  Serious: No
  Sender: FDA-Public Use
  Company Number: US-BAYER-200942859NA

PATIENT
  Age: 35 Year
  Sex: Male
  Weight: 82 kg

DRUGS (1)
  1. CIPRO [Suspect]
     Indication: GASTROENTERITIS
     Dates: start: 20091211

REACTIONS (1)
  - HEADACHE [None]
